FAERS Safety Report 6241554-2 (Version None)
Quarter: 2009Q2

REPORT INFORMATION
  Report Type: 
  Country: None (occurrence: None)
  Receive Date: 20090623
  Receipt Date: 20031001
  Transmission Date: 20091009
  Serious: Yes (Hospitalization)
  Sender: FDA-Public Use
  Company Number: AT-ROCHE-345426

PATIENT
  Sex: Male

DRUGS (18)
  1. DACLIZUMAB [Suspect]
     Dosage: BASELINE VISIT
     Route: 042
     Dates: start: 20030510
  2. DACLIZUMAB [Suspect]
     Dosage: FOR FOUR DOSES
     Route: 042
     Dates: start: 20030524
  3. MYCOPHENOLATE MOFETIL [Suspect]
     Dosage: DRUG NAME: MYCOPHENOLATMOFETIL
     Route: 048
     Dates: start: 20030510
  4. MYCOPHENOLATE MOFETIL [Suspect]
     Route: 048
     Dates: start: 20030511
  5. CYCLOSPORINE [Suspect]
     Dosage: DRUG NAME: CYCLOSPORINE A.
     Route: 048
     Dates: start: 20030510, end: 20030525
  6. CYCLOSPORINE [Suspect]
     Route: 048
     Dates: start: 20030526, end: 20040510
  7. CYCLOSPORINE [Suspect]
     Dosage: DRUG NAME: CYCLOSPORINE A
     Route: 048
     Dates: start: 20040511
  8. PREDNISOLONE [Suspect]
     Dosage: DRUG NAME: PREDNISOLONE
     Route: 048
     Dates: start: 20030513, end: 20030520
  9. PREDNISOLONE [Suspect]
     Route: 048
     Dates: start: 20030521, end: 20030808
  10. PREDNISOLONE [Suspect]
     Route: 048
     Dates: start: 20030809, end: 20031110
  11. PREDNISOLONE [Suspect]
     Route: 048
     Dates: start: 20031111, end: 20040210
  12. METHYLPREDNISOLONE [Suspect]
     Route: 042
     Dates: start: 20030510
  13. METHYLPREDNISOLONE [Suspect]
     Route: 042
     Dates: start: 20030511
  14. METHYLPREDNISOLONE [Suspect]
     Route: 042
     Dates: start: 20030512
  15. PLENDIL [Concomitant]
     Dosage: DRUG NAME: FELODIPIN
     Route: 048
     Dates: start: 20030530, end: 20031111
  16. SELOKEN [Concomitant]
     Dosage: DRUG NAME: METOPROLOL
     Route: 048
     Dates: start: 20030521, end: 20031111
  17. SELOKEN [Concomitant]
     Route: 048
     Dates: start: 20050511
  18. VALGANCICLOVIR HCL [Concomitant]
     Dosage: DRUG NAME: VALGANCYCLOVIR.
     Route: 048
     Dates: start: 20030512, end: 20031111

REACTIONS (1)
  - FEBRILE NEUTROPENIA [None]
